FAERS Safety Report 25896005 (Version 1)
Quarter: 2025Q4

REPORT INFORMATION
  Report Type: Report from Study
  Country: US (occurrence: US)
  Receive Date: 20251008
  Receipt Date: 20251008
  Transmission Date: 20260118
  Serious: Yes (Other)
  Sender: EISAI
  Company Number: US-Eisai-EC-2025-197948

PATIENT
  Age: 65 Year
  Sex: Male

DRUGS (2)
  1. LENVIMA [Suspect]
     Active Substance: LENVATINIB
     Indication: Renal cancer
     Route: 048
     Dates: start: 202507
  2. LENVIMA [Suspect]
     Active Substance: LENVATINIB
     Route: 048

REACTIONS (3)
  - Hepatitis [Unknown]
  - Hepatic enzyme increased [Unknown]
  - Pruritus [Unknown]

NARRATIVE: CASE EVENT DATE: 20250101
